FAERS Safety Report 17519719 (Version 1)
Quarter: 2020Q1

REPORT INFORMATION
  Report Type: Spontaneous
  Country: US (occurrence: US)
  Receive Date: 20200228
  Receipt Date: 20200228
  Transmission Date: 20200409
  Serious: Yes (Hospitalization)
  Sender: FDA-Public Use
  Company Number: None

PATIENT
  Sex: Female

DRUGS (1)
  1. ENTECAVIR 0.5MG  TEVA PHARMACEUTICALS USA [Suspect]
     Active Substance: ENTECAVIR
     Indication: HEPATITIS VIRAL
     Route: 048
     Dates: start: 20160824

REACTIONS (2)
  - Gait inability [None]
  - Guillain-Barre syndrome [None]
